FAERS Safety Report 5683526-2 (Version None)
Quarter: 2008Q1

REPORT INFORMATION
  Report Type: 
  Country: None (occurrence: None)
  Receive Date: 20080326
  Receipt Date: 20080320
  Transmission Date: 20080703
  Serious: Yes (Hospitalization)
  Sender: FDA-Public Use
  Company Number: GRT-2007-12996

PATIENT
  Age: 82 Year
  Sex: Female
  Weight: 65 kg

DRUGS (6)
  1. LIDOCAINE [Suspect]
     Indication: POST HERPETIC NEURALGIA
     Dosage: 1/3 PATCH A DAY
     Dates: start: 20070528, end: 20070821
  2. PREGABALIN [Suspect]
     Indication: POST HERPETIC NEURALGIA
     Dosage: 150MG X 2/DAY
     Dates: start: 20070626, end: 20070708
  3. MARIVARIN [Concomitant]
  4. ULTOP [Concomitant]
  5. LANITOP [Concomitant]
  6. LEKADOL [Concomitant]

REACTIONS (9)
  - ASCITES [None]
  - ATRIAL FIBRILLATION [None]
  - CARBOHYDRATE ANTIGEN 125 INCREASED [None]
  - CARDIAC FAILURE [None]
  - COLONIC POLYP [None]
  - HAEMORRHOIDS [None]
  - HEPATIC ENZYME INCREASED [None]
  - OVARIAN NEOPLASM [None]
  - RECTAL POLYP [None]
